FAERS Safety Report 21028091 (Version 1)
Quarter: 2022Q2

REPORT INFORMATION
  Report Type: Spontaneous
  Country: FI (occurrence: FI)
  Receive Date: 20220630
  Receipt Date: 20220630
  Transmission Date: 20220720
  Serious: Yes (Hospitalization, Other)
  Sender: FDA-Public Use
  Company Number: FI-SA-SAC20220629001316

PATIENT
  Age: 81 Year
  Sex: Female

DRUGS (1)
  1. LANTUS [Suspect]
     Active Substance: INSULIN GLARGINE

REACTIONS (3)
  - Pneumonia [Not Recovered/Not Resolved]
  - Confusional state [Not Recovered/Not Resolved]
  - Limb discomfort [Unknown]
